FAERS Safety Report 6059288-6 (Version None)
Quarter: 2009Q1

REPORT INFORMATION
  Report Type: 
  Country: None (occurrence: None)
  Receive Date: 20090130
  Receipt Date: 20090121
  Transmission Date: 20090719
  Serious: Yes (Other)
  Sender: FDA-Public Use
  Company Number: JP-ROCHE-521732

PATIENT
  Sex: Male
  Weight: 35 kg

DRUGS (1)
  1. ROCEPHIN [Suspect]
     Indication: PYREXIA
     Route: 041
     Dates: start: 20070914, end: 20070921

REACTIONS (2)
  - CHOLELITHIASIS [None]
  - PANCREATITIS [None]
